FAERS Safety Report 5208659-6 (Version None)
Quarter: 2007Q1

REPORT INFORMATION
  Report Type: 
  Country: None (occurrence: None)
  Receive Date: 20070116
  Receipt Date: 20070104
  Transmission Date: 20070707
  Serious: Yes (Death, Hospitalization)
  Sender: FDA-Public Use
  Company Number: PHBS2007CA00563

PATIENT
  Age: 58 Year
  Sex: Female

DRUGS (7)
  1. CYCLOSPORINE [Suspect]
     Indication: HEART TRANSPLANT
  2. PREDNISONE TAB [Concomitant]
  3. AZATHIOPRINE [Concomitant]
  4. LISINOPRIL [Concomitant]
  5. ASPIRIN [Concomitant]
     Indication: THROMBOSIS
  6. ATORVASTATIN CALCIUM [Suspect]
     Indication: DYSLIPIDAEMIA
  7. CLOPIDOGREL [Suspect]
     Indication: THROMBOSIS

REACTIONS (10)
  - BLOOD CREATINE PHOSPHOKINASE INCREASED [None]
  - BLOOD CREATININE INCREASED [None]
  - CONCOMITANT DISEASE PROGRESSION [None]
  - CORONARY ARTERY DISEASE [None]
  - DRUG LEVEL ABOVE THERAPEUTIC [None]
  - EXERCISE TOLERANCE DECREASED [None]
  - MUSCULAR WEAKNESS [None]
  - MYALGIA [None]
  - MYOGLOBINURIA [None]
  - RHABDOMYOLYSIS [None]
